FAERS Safety Report 8277831-3 (Version None)
Quarter: 2012Q2

REPORT INFORMATION
  Report Type: 
  Country: None (occurrence: None)
  Receive Date: 20120412
  Receipt Date: 20120403
  Transmission Date: 20120825
  Serious: Yes (Hospitalization)
  Sender: FDA-Public Use
  Company Number: US-ALLERGAN-1201178US

PATIENT
  Age: 84 Year
  Sex: Female
  Weight: 68.027 kg

DRUGS (13)
  1. BENICAR [Concomitant]
  2. NORVASC [Concomitant]
  3. BOTULINUM TOXIN TYPE A [Suspect]
     Indication: NEUROGENIC BLADDER
     Dosage: 200 UNITS, SINGLE
     Route: 030
     Dates: start: 20120112, end: 20120112
  4. CALCIUM PLUS [Concomitant]
  5. PRAVASTATIN [Concomitant]
  6. M.V.I. [Concomitant]
  7. ASPIRIN [Concomitant]
  8. VITAMIN D [Concomitant]
  9. SANCTURA XR [Concomitant]
  10. CARVEDILOL [Concomitant]
  11. METFORMIN HCL [Concomitant]
  12. ESTER-C [Concomitant]
  13. GLIMEPIRIDE [Concomitant]

REACTIONS (3)
  - CEREBROVASCULAR ACCIDENT [None]
  - SWELLING FACE [None]
  - SPEECH DISORDER [None]
